FAERS Safety Report 25986208 (Version 1)
Quarter: 2025Q4

REPORT INFORMATION
  Report Type: Spontaneous
  Country: US (occurrence: US)
  Receive Date: 20251031
  Receipt Date: 20251031
  Transmission Date: 20260117
  Serious: Yes (Other)
  Sender: ELI LILLY AND COMPANY
  Company Number: US-ELI_LILLY_AND_COMPANY-US202510023180

PATIENT
  Age: 73 Year
  Sex: Male

DRUGS (2)
  1. BASAGLAR [Suspect]
     Active Substance: INSULIN GLARGINE
     Indication: Type 2 diabetes mellitus
     Dosage: 300 U, UNKNOWN
     Route: 058
  2. BASAGLAR [Suspect]
     Active Substance: INSULIN GLARGINE
     Dosage: 300 U, UNKNOWN
     Route: 058

REACTIONS (4)
  - Renal cancer [Recovered/Resolved]
  - Prostate cancer [Unknown]
  - Metastases to bone [Unknown]
  - Renal cell carcinoma [Unknown]

NARRATIVE: CASE EVENT DATE: 20170101
